FAERS Safety Report 16068389 (Version 1)
Quarter: 2019Q1

REPORT INFORMATION
  Report Type: Spontaneous
  Country: US (occurrence: US)
  Receive Date: 20190313
  Receipt Date: 20190313
  Transmission Date: 20190418
  Serious: Yes (Hospitalization)
  Sender: FDA-Public Use
  Company Number: US-AXIS CLINICALS-2063945

PATIENT
  Age: 63 Year
  Sex: Female
  Weight: 70.3 kg

DRUGS (1)
  1. ORACEA [Suspect]
     Active Substance: DOXYCYCLINE
     Indication: PAPULOPUSTULAR ROSACEA
     Route: 048
     Dates: start: 20181201, end: 20181215

REACTIONS (3)
  - Injury [None]
  - Radius fracture [Recovered/Resolved]
  - Fall [None]

NARRATIVE: CASE EVENT DATE: 20181219
